FAERS Safety Report 16623118 (Version 1)
Quarter: 2019Q3

REPORT INFORMATION
  Report Type: Report from Study
  Country: KR (occurrence: KR)
  Receive Date: 20190723
  Receipt Date: 20190723
  Transmission Date: 20191004
  Serious: Yes (Other)
  Sender: FDA-Public Use
  Company Number: KR-JNJFOC-20190714560

PATIENT

DRUGS (3)
  1. DEXRAZOXANE. [Concomitant]
     Active Substance: DEXRAZOXANE
     Indication: PRODUCT USED FOR UNKNOWN INDICATION
     Route: 065
  2. CAELYX [Suspect]
     Active Substance: DOXORUBICIN HYDROCHLORIDE
     Indication: SOFT TISSUE SARCOMA
     Route: 042
  3. OLARATUMAB [Suspect]
     Active Substance: OLARATUMAB
     Indication: SOFT TISSUE SARCOMA
     Route: 042

REACTIONS (13)
  - Diarrhoea [Unknown]
  - Neutropenia [Unknown]
  - Constipation [Unknown]
  - Rash [Unknown]
  - Febrile neutropenia [Unknown]
  - Anaemia [Unknown]
  - Off label use [Unknown]
  - Mucosal inflammation [Unknown]
  - Nausea [Unknown]
  - Decreased appetite [Unknown]
  - Fatigue [Unknown]
  - Thrombocytopenia [Unknown]
  - Product use in unapproved indication [Unknown]
